FAERS Safety Report 6033486-X (Version None)
Quarter: 2009Q1

REPORT INFORMATION
  Report Type: 
  Country: None (occurrence: None)
  Receive Date: 20090109
  Receipt Date: 20081230
  Transmission Date: 20090719
  Serious: Yes (Disabling)
  Sender: FDA-Public Use
  Company Number: FR-GENENTECH-274888

PATIENT
  Sex: Female

DRUGS (2)
  1. RITUXIMAB [Suspect]
     Indication: B-CELL LYMPHOMA
     Dosage: UNK
     Route: 042
     Dates: start: 20061013
  2. RITUXIMAB [Suspect]
     Dosage: 600 MG, Q21D
     Route: 042
     Dates: start: 20070707

REACTIONS (1)
  - LUNG INFECTION [None]
